FAERS Safety Report 7109572-X (Version None)
Quarter: 2010Q4

REPORT INFORMATION
  Report Type: 
  Country: None (occurrence: None)
  Receive Date: 20101118
  Receipt Date: 20101109
  Transmission Date: 20110411
  Serious: No
  Sender: FDA-Public Use
  Company Number: US-BIOGENIDEC-2010BI039524

PATIENT
  Sex: Female

DRUGS (3)
  1. AVONEX [Suspect]
     Indication: MULTIPLE SCLEROSIS
     Route: 030
     Dates: start: 19990611
  2. AVONEX [Suspect]
     Route: 030
  3. AVONEX [Suspect]
     Route: 030

REACTIONS (6)
  - AMNESIA [None]
  - ASTHENIA [None]
  - FATIGUE [None]
  - HYPERSOMNIA [None]
  - INFLUENZA LIKE ILLNESS [None]
  - PAIN [None]
